FAERS Safety Report 7876736-7 (Version None)
Quarter: 2011Q4

REPORT INFORMATION
  Report Type: 
  Country: None (occurrence: None)
  Receive Date: 20111031
  Receipt Date: 20111021
  Transmission Date: 20120403
  Serious: Yes (Hospitalization)
  Sender: FDA-Public Use
  Company Number: US-ASTRAZENECA-2011SE63972

PATIENT
  Age: 33 Year
  Sex: Male

DRUGS (7)
  1. VIMOVO [Suspect]
     Route: 048
  2. ATENOLOL [Concomitant]
  3. CYMBALTA [Concomitant]
  4. PERCOCET [Concomitant]
     Indication: PAIN
     Dosage: 5/325 AT NIGHT
  5. SOMA [Concomitant]
  6. XANAX [Concomitant]
  7. ZITHROMAX [Concomitant]

REACTIONS (8)
  - CARDIAC FAILURE CONGESTIVE [None]
  - GENERALISED OEDEMA [None]
  - BACK DISORDER [None]
  - BACK PAIN [None]
  - DECREASED APPETITE [None]
  - DYSPNOEA [None]
  - HYPERTENSION [None]
  - RHEUMATOID ARTHRITIS [None]
